FAERS Safety Report 25628199 (Version 1)
Quarter: 2025Q3

REPORT INFORMATION
  Report Type: Spontaneous
  Country: GB (occurrence: GB)
  Receive Date: 20250731
  Receipt Date: 20250731
  Transmission Date: 20251021
  Serious: Yes (Other)
  Sender: BOEHRINGER INGELHEIM
  Company Number: GB-MHRA-TPP17971635C945849YC1753871354068

PATIENT
  Age: 45 Year
  Sex: Male
  Weight: 98 kg

DRUGS (9)
  1. EMPAGLIFLOZIN [Suspect]
     Active Substance: EMPAGLIFLOZIN
     Indication: Ill-defined disorder
  2. NITROGLYCERIN [Concomitant]
     Active Substance: NITROGLYCERIN
     Indication: Ill-defined disorder
  3. FERROUS FUMARATE [Concomitant]
     Active Substance: FERROUS FUMARATE
     Indication: Ill-defined disorder
     Dosage: FORM OF ADMIN:TPP YC - PLEASE RECLASSIFY
     Dates: start: 20250709
  4. BETAMETHASONE VALERATE [Concomitant]
     Active Substance: BETAMETHASONE VALERATE
     Indication: Ill-defined disorder
  5. BISOPROLOL [Concomitant]
     Active Substance: BISOPROLOL
     Indication: Ill-defined disorder
     Dosage: FORM OF ADMIN:TPP YC - PLEASE RECLASSIFY
     Dates: start: 20250202, end: 20250605
  6. METFORMIN HYDROCHLORIDE [Concomitant]
     Active Substance: METFORMIN HYDROCHLORIDE
     Indication: Ill-defined disorder
     Dosage: WITH MAIN MEAL?FORM OF ADMIN:TPP YC - PLEASE RECLASSIFY
     Dates: start: 20250202, end: 20250709
  7. TAMSULOSIN HYDROCHLORIDE [Concomitant]
     Active Substance: TAMSULOSIN HYDROCHLORIDE
     Indication: Ill-defined disorder
     Dosage: FORM OF ADMIN:TPP YC - PLEASE RECLASSIFY
     Dates: start: 20250202
  8. ATORVASTATIN [Concomitant]
     Active Substance: ATORVASTATIN
     Indication: Ill-defined disorder
     Dosage: FORM OF ADMIN:TPP YC - PLEASE RECLASSIFY
     Dates: start: 20250424
  9. METFORMIN [Concomitant]
     Active Substance: METFORMIN HYDROCHLORIDE
     Indication: Ill-defined disorder
     Dosage: WITH MAIN MEAL?FORM OF ADMIN:TPP YC - PLEASE RECLASSIFY
     Dates: start: 20250709

REACTIONS (1)
  - Restless legs syndrome [Recovering/Resolving]

NARRATIVE: CASE EVENT DATE: 20250709
